FAERS Safety Report 6507542-3 (Version None)
Quarter: 2009Q4

REPORT INFORMATION
  Report Type: 
  Country: None (occurrence: None)
  Receive Date: 20091221
  Receipt Date: 20091215
  Transmission Date: 20100525
  Serious: Yes (Other)
  Sender: FDA-Public Use
  Company Number: BR-ABBOTT-09P-020-0603156-00

PATIENT
  Sex: Male
  Weight: 90 kg

DRUGS (13)
  1. HUMIRA [Suspect]
     Indication: RHEUMATOID ARTHRITIS
     Route: 058
     Dates: start: 20090501, end: 20090501
  2. HUMIRA [Suspect]
     Indication: ANKYLOSING SPONDYLITIS
     Route: 058
     Dates: end: 20091001
  3. MODURETIC 5-50 [Concomitant]
     Indication: HYPERTENSION
     Route: 048
  4. DIOVAN [Concomitant]
     Indication: HYPERTENSION
     Route: 048
     Dates: start: 20010101
  5. PRESSAT [Concomitant]
     Indication: BLOOD PRESSURE
     Route: 048
     Dates: start: 20090401
  6. CALTREN [Concomitant]
     Indication: HYPERTENSION
     Route: 048
     Dates: start: 20090801
  7. ENALAPRIL [Concomitant]
     Indication: HYPERTENSION
     Route: 048
     Dates: start: 20090601
  8. BUCLIZINE [Concomitant]
     Indication: DIABETES MELLITUS
     Route: 048
     Dates: start: 20080101
  9. GLIFAGE [Concomitant]
     Indication: DIABETES MELLITUS
     Route: 048
     Dates: start: 20080101
  10. PREGABALIN [Concomitant]
     Indication: NEUROPATHY PERIPHERAL
     Route: 048
     Dates: start: 20090901
  11. SIMVASTATIN [Concomitant]
     Indication: BLOOD CHOLESTEROL ABNORMAL
     Route: 048
  12. RIVOTRIL [Concomitant]
     Indication: SEDATIVE THERAPY
     Route: 048
     Dates: start: 20040101
  13. DIAZEFAST [Concomitant]
     Indication: ANXIETY
     Route: 048
     Dates: start: 20090901

REACTIONS (3)
  - DRUG INEFFECTIVE [None]
  - PULSE PRESSURE DECREASED [None]
  - SYNCOPE [None]
